FAERS Safety Report 23458580 (Version 4)
Quarter: 2024Q3

REPORT INFORMATION
  Report Type: Report from Study
  Country: US (occurrence: US)
  Receive Date: 20240130
  Receipt Date: 20240903
  Transmission Date: 20241016
  Serious: Yes (Other)
  Sender: ABBVIE
  Company Number: US-ABBVIE-5604766

PATIENT
  Sex: Female
  Weight: 49 kg

DRUGS (23)
  1. VENCLEXTA [Suspect]
     Active Substance: VENETOCLAX
     Indication: Chronic lymphocytic leukaemia
     Dosage: FORM STRENGTH: 100 MILLIGRAM
     Route: 048
     Dates: start: 20221024
  2. VENCLEXTA [Suspect]
     Active Substance: VENETOCLAX
     Indication: Chronic lymphocytic leukaemia
     Dosage: FORM STRENGTH: 100 MILLIGRAM
     Route: 048
     Dates: start: 20230303
  3. VENCLEXTA [Suspect]
     Active Substance: VENETOCLAX
     Indication: Chronic lymphocytic leukaemia
     Dosage: LAST ADMIN OCT  2022, FORM STRENGTH: 100 MILLIGRAM
     Route: 048
     Dates: start: 20220519
  4. VENCLEXTA [Suspect]
     Active Substance: VENETOCLAX
     Indication: Chronic lymphocytic leukaemia
     Dosage: TAKE 4 TABLET(S) BY MOUTH EVERY DAY WITH BREAKFAST AND FULL GLASS OF WATER, FORM STRENGTH 100MG
     Route: 048
  5. COLACE [Concomitant]
     Active Substance: DOCUSATE SODIUM
     Indication: Diarrhoea
     Dosage: TAKE 1-2 CAPSULES BY MOUTH DAILY HOLD IF ANY DIARRHEA?FORM STRENGTH: 100 MILLIGRAM
     Route: 048
     Dates: start: 20221104
  6. RITUXAN [Suspect]
     Active Substance: RITUXIMAB
     Indication: Product used for unknown indication
     Route: 065
     Dates: start: 20230302
  7. LIDOCAINE [Concomitant]
     Active Substance: LIDOCAINE
     Indication: Product used for unknown indication
     Dosage: APPLY 1 APPLICATION TOPICALLY TWICE DAILY AS NEEDED ?FORM STRENGTH: 0.5 PERCENT
     Route: 061
     Dates: start: 20220928
  8. GLUCOPHAGE [Concomitant]
     Active Substance: METFORMIN HYDROCHLORIDE
     Indication: Product used for unknown indication
     Dosage: TAKE 1 TABLET BY MOUTH TWICE DAILY WITH MEALS?FORM STRENGTH: 1000  MILLIGRAM
     Route: 048
     Dates: start: 20230119
  9. LOPRESSOR [Concomitant]
     Active Substance: METOPROLOL TARTRATE
     Indication: Product used for unknown indication
     Dosage: FORM STRENGTH: 25 MILLIGRAM,?TAKE 1 TABLET BY MOUTH TWICE DAILY
     Route: 048
     Dates: start: 20220818
  10. ASPIRIN [Concomitant]
     Active Substance: ASPIRIN
     Indication: Product used for unknown indication
     Dosage: FORM STRENGTH: 81 MILLIGRAM
     Route: 048
     Dates: start: 20200116
  11. ZOCOR [Concomitant]
     Active Substance: SIMVASTATIN
     Indication: Product used for unknown indication
     Dosage: FORM STRENGTH: 20 MILLIGRAM,?TAKE 1 TABLET BY MOUTH ONCE DAILY
     Route: 048
     Dates: start: 20230105
  12. CELGOSIVIR [Concomitant]
     Active Substance: CELGOSIVIR
     Indication: Product used for unknown indication
     Route: 065
     Dates: start: 2019
  13. ZYLOPRIM [Concomitant]
     Active Substance: ALLOPURINOL
     Indication: Product used for unknown indication
     Dosage: FORM STRENGTH: 100 MILLIGRAM,?TAKE 1 TABLET BY MOUTH DAILY
     Route: 048
     Dates: start: 20220928
  14. VITAMINS [Concomitant]
     Active Substance: VITAMINS
     Indication: Product used for unknown indication
     Dosage: TAKE 1 CAPSULE BY MOUTH DAILY
     Route: 048
  15. VITAMIN B12 [Concomitant]
     Active Substance: CYANOCOBALAMIN
     Indication: Product used for unknown indication
     Dosage: FORM STRENGTH: 1000 MICROGRAM,?TAKE 1 TABLET BY MOUTH DAILY.
     Route: 048
     Dates: start: 20220615
  16. LOTREL [Concomitant]
     Active Substance: AMLODIPINE BESYLATE\BENAZEPRIL HYDROCHLORIDE
     Indication: Product used for unknown indication
     Dosage: 10-40 MG PER CAPSULE
     Route: 048
     Dates: start: 20220509
  17. FOLIC ACID [Concomitant]
     Active Substance: FOLIC ACID
     Indication: Product used for unknown indication
     Dosage: FORM STRENGTH: 1 MILLIGRAM?TAKE 1 TABLET BY MOUTH DAILY
     Route: 048
     Dates: start: 20221104
  18. Sennalax [Concomitant]
     Indication: Constipation
     Dosage: TAKE 2-4 TABLETS BY MOUTH NIGHTLY AS NEEDED FOR CONSTIPATION?FORM STRENGTH: 8.6 MILLIGRAM
     Route: 048
     Dates: start: 20221104
  19. MAGOX [Concomitant]
     Indication: Product used for unknown indication
     Dosage: FORM STRENGTH: 400 MILLIGRAM?TAKE 1 TABLET BY MOUTH 2 TIMES DAILY
     Route: 048
     Dates: start: 20220927
  20. IMBRUVICA [Concomitant]
     Active Substance: IBRUTINIB
     Indication: Product used for unknown indication
     Route: 048
     Dates: start: 2016, end: 201812
  21. NITROGLYCERIN [Concomitant]
     Active Substance: NITROGLYCERIN
     Indication: Product used for unknown indication
     Route: 065
  22. ESTRACE [Concomitant]
     Active Substance: ESTRADIOL
     Indication: Product used for unknown indication
     Dosage: FORM STRENGTH: 0.1 MG/G VAGINAL CREAM,?PLACE 1 G VAGINALLY THREE TIMES A WEEK.
     Route: 065
  23. EMLA [Concomitant]
     Active Substance: LIDOCAINE\PRILOCAINE
     Indication: Product used for unknown indication
     Dosage: CREAM APPLY TO AREA AS DIRECTED.
     Route: 065

REACTIONS (4)
  - Arteriosclerosis [Unknown]
  - Coronary artery stenosis [Unknown]
  - Atrial enlargement [Unknown]
  - Cardiac perfusion defect [Unknown]
